FAERS Safety Report 23172293 (Version 2)
Quarter: 2023Q4

REPORT INFORMATION
  Report Type: Spontaneous
  Country: JP (occurrence: JP)
  Receive Date: 20231110
  Receipt Date: 20231222
  Transmission Date: 20240110
  Serious: Yes (Other)
  Sender: FDA-Public Use
  Company Number: JP-SUN PHARMACEUTICAL INDUSTRIES LTD-2023RR-417551

PATIENT
  Age: 56 Year
  Sex: Female

DRUGS (9)
  1. SUNITINIB [Suspect]
     Active Substance: SUNITINIB
     Indication: Metastases to liver
     Dosage: UNK
     Route: 065
  2. SUNITINIB [Suspect]
     Active Substance: SUNITINIB
     Indication: Metastases to lymph nodes
  3. LANREOTIDE [Suspect]
     Active Substance: LANREOTIDE
     Indication: Metastases to liver
     Dosage: UNK
     Route: 065
  4. STREPTOZOCIN [Suspect]
     Active Substance: STREPTOZOCIN
     Indication: Metastases to liver
     Dosage: UNK
     Route: 065
  5. STREPTOZOCIN [Suspect]
     Active Substance: STREPTOZOCIN
     Indication: Metastases to lymph nodes
  6. FLUOROURACIL [Suspect]
     Active Substance: FLUOROURACIL
     Indication: Metastases to liver
     Dosage: UNK
     Route: 065
  7. FLUOROURACIL [Suspect]
     Active Substance: FLUOROURACIL
     Indication: Metastases to lymph nodes
  8. DIAZOXIDE [Suspect]
     Active Substance: DIAZOXIDE
     Indication: Metastases to liver
     Dosage: UNK
     Route: 065
  9. DIAZOXIDE [Suspect]
     Active Substance: DIAZOXIDE
     Indication: Metastases to lymph nodes

REACTIONS (2)
  - Hypoglycaemia [Unknown]
  - Drug ineffective [Unknown]
